FAERS Safety Report 5673799-4 (Version None)
Quarter: 2008Q1

REPORT INFORMATION
  Report Type: 
  Country: None (occurrence: None)
  Receive Date: 20080319
  Receipt Date: 20080311
  Transmission Date: 20080703
  Serious: Yes (Other)
  Sender: FDA-Public Use
  Company Number: US-PFIZER INC-2008022490

PATIENT
  Age: 62 Year
  Sex: Female

DRUGS (2)
  1. NORVASC [Suspect]
  2. TIAZAC [Suspect]

REACTIONS (9)
  - ABDOMINAL PAIN [None]
  - FLATULENCE [None]
  - HYPERTENSION [None]
  - HYPOTENSION [None]
  - INFLUENZA LIKE ILLNESS [None]
  - NAUSEA [None]
  - NECK PAIN [None]
  - SINUSITIS [None]
  - WEIGHT DECREASED [None]
